FAERS Safety Report 14853448 (Version 4)
Quarter: 2019Q2

REPORT INFORMATION
  Report Type: Report from Study
  Country: IT (occurrence: IT)
  Receive Date: 20180507
  Receipt Date: 20190624
  Transmission Date: 20190711
  Serious: Yes (Hospitalization)
  Sender: FDA-Public Use
  Company Number: IT-ROCHE-2113356

PATIENT
  Age: 80 Year
  Sex: Male
  Weight: 78 kg

DRUGS (11)
  1. GEMCITABINE [Suspect]
     Active Substance: GEMCITABINE\GEMCITABINE HYDROCHLORIDE
     Indication: TRANSITIONAL CELL CARCINOMA
     Dosage: TO ACHIEVE AREA UNDER THE CONCENTRATION-TIME CURVE (AUC) OF 4.5 MILLIGRAM PER MILLILITER INTO MINUTE
     Route: 042
     Dates: start: 20180131
  2. SIVASTIN [Concomitant]
     Active Substance: SIMVASTATIN
     Route: 048
     Dates: start: 2008
  3. EPINITRIL [Concomitant]
     Active Substance: NITROGLYCERIN
     Route: 062
     Dates: start: 2008
  4. METOCLOPRAMIDE. [Concomitant]
     Active Substance: METOCLOPRAMIDE
     Indication: PREMEDICATION
     Route: 042
     Dates: start: 20180228, end: 20180413
  5. ATEZOLIZUMAB. [Suspect]
     Active Substance: ATEZOLIZUMAB
     Indication: TRANSITIONAL CELL CARCINOMA
     Dosage: ON DAY 1 OF EACH 21-DAY CYCLE?DATE OF MOST RECENT DOSE PRIOR TO AE ONSET: 06/APR/2018
     Route: 042
  6. PLAVIX [Concomitant]
     Active Substance: CLOPIDOGREL BISULFATE
     Route: 048
     Dates: start: 2008
  7. NORVASC [Concomitant]
     Active Substance: AMLODIPINE BESYLATE
     Indication: HYPERTENSION
     Route: 048
     Dates: start: 2008
  8. ONDANSETRON [Concomitant]
     Active Substance: ONDANSETRON
     Indication: PREMEDICATION
     Route: 042
     Dates: start: 20180131
  9. CARBOPLATIN. [Suspect]
     Active Substance: CARBOPLATIN
     Indication: TRANSITIONAL CELL CARCINOMA
     Dosage: TO ACHIEVE AREA UNDER THE CONCENTRATION-TIME CURVE (AUC) OF 4.5 MILLIGRAM PER MILLILITER INTO MINUTE
     Route: 042
     Dates: start: 20180131
  10. METOPROLOL. [Concomitant]
     Active Substance: METOPROLOL
     Route: 048
     Dates: start: 2008
  11. PANTORC [Concomitant]
     Active Substance: PANTOPRAZOLE SODIUM
     Indication: GASTROINTESTINAL DISORDER PROPHYLAXIS
     Route: 048
     Dates: start: 2008

REACTIONS (1)
  - Pancytopenia [Recovered/Resolved]

NARRATIVE: CASE EVENT DATE: 20180422
